FAERS Safety Report 14734436 (Version 1)
Quarter: 2018Q2

REPORT INFORMATION
  Report Type: Spontaneous
  Country: IT (occurrence: IT)
  Receive Date: 20180409
  Receipt Date: 20180409
  Transmission Date: 20180711
  Serious: Yes (Other)
  Sender: FDA-Public Use
  Company Number: IT-PFIZER INC-2018142392

PATIENT
  Age: 42 Year
  Sex: Male

DRUGS (5)
  1. PAROXETINE. [Suspect]
     Active Substance: PAROXETINE
     Route: 048
  2. CLARITHROMYCIN. [Suspect]
     Active Substance: CLARITHROMYCIN
     Dosage: 3000 MG, UNK
     Route: 048
  3. ACTIGRIP [Suspect]
     Active Substance: ACETAMINOPHEN\PSEUDOEPHEDRINE HYDROCHLORIDE\TRIPROLIDINE HYDROCHLORIDE
     Dosage: 11 DF, UNK
     Route: 048
  4. MEDROL [Suspect]
     Active Substance: METHYLPREDNISOLONE
     Route: 048
  5. OKITASK [Suspect]
     Active Substance: KETOPROFEN LYSINE
     Dosage: 20 DF, UNK (DOSAGE FORM: SACHET)
     Route: 048

REACTIONS (2)
  - Intentional self-injury [Unknown]
  - Intentional overdose [Unknown]
